FAERS Safety Report 7372397-4 (Version None)
Quarter: 2011Q1

REPORT INFORMATION
  Report Type: 
  Country: None (occurrence: None)
  Receive Date: 20110324
  Receipt Date: 20110321
  Transmission Date: 20110831
  Serious: Yes (Other)
  Sender: FDA-Public Use
  Company Number: US-AMGEN-USASP2011015260

PATIENT
  Age: 87 Year
  Sex: Female

DRUGS (1)
  1. PROLIA [Suspect]
     Indication: OSTEOPOROSIS POSTMENOPAUSAL
     Dates: start: 20100901

REACTIONS (8)
  - DISTURBANCE IN ATTENTION [None]
  - PARKINSON'S DISEASE [None]
  - MUSCLE DISORDER [None]
  - DYSPHAGIA [None]
  - HEARING IMPAIRED [None]
  - FATIGUE [None]
  - VISUAL IMPAIRMENT [None]
  - DYSGRAPHIA [None]
